FAERS Safety Report 8857977 (Version 1)
Quarter: 2012Q4

REPORT INFORMATION
  Report Type: 
  Country: US (occurrence: US)
  Receive Date: 20121024
  Receipt Date: 20121024
  Transmission Date: 20130627
  Serious: No
  Sender: FDA-Public Use
  Company Number: US-AMGEN-USASP2012004307

PATIENT
  Age: 51 Year
  Sex: Female

DRUGS (13)
  1. ENBREL [Suspect]
     Indication: PRODUCT USED FOR UNKNOWN INDICATION
     Dosage: 50 mg, qwk
     Route: 058
  2. AMBIEN CR [Concomitant]
     Dosage: 12.5 mg, UNK
  3. TRAMADOL HCL [Concomitant]
     Dosage: 50 mg, UNK
  4. MULTIVITAMIN                       /00097801/ [Concomitant]
  5. GRAPE SEED EXTRACT [Concomitant]
  6. VITAMIN D /00107901/ [Concomitant]
     Dosage: 1000 IU, UNK
  7. CALCIUM D                          /00944201/ [Concomitant]
  8. CRANBERRY                          /01512301/ [Concomitant]
     Dosage: 1000 mg, UNK
  9. DICLOFENAC [Concomitant]
     Dosage: 75 mg, UNK
  10. GINGER                             /01646602/ [Concomitant]
     Dosage: 500 mg, UNK
  11. PREVACID [Concomitant]
     Dosage: 30 mg, UNK
  12. GAS RELIEF [Concomitant]
     Dosage: 125 mg, UNK
  13. LYRICA [Concomitant]
     Dosage: 100 mg, UNK

REACTIONS (3)
  - Vision blurred [Unknown]
  - Hypoaesthesia [Unknown]
  - Paraesthesia [Unknown]
